FAERS Safety Report 23525944 (Version 1)
Quarter: 2024Q1

REPORT INFORMATION
  Report Type: Spontaneous
  Country: US (occurrence: US)
  Receive Date: 20240215
  Receipt Date: 20240215
  Transmission Date: 20240409
  Serious: No
  Sender: FDA-Public Use
  Company Number: US-SA-SAC20240208000700

PATIENT
  Age: 8 Year
  Sex: Female
  Weight: 63 kg

DRUGS (2)
  1. DUPIXENT [Suspect]
     Active Substance: DUPILUMAB
     Indication: Dermatitis atopic
     Dosage: DOSE AND ROUTE PRESCRIBED: INJECT 200 MG (1 SYRINGE) UNDER THE SKIN FREQUENCY: EVERY 14 DAYS
     Route: 058
     Dates: start: 20220223
  2. VITAMIN D NOS [Concomitant]
     Active Substance: VITAMIN D NOS
     Dosage: UNK

REACTIONS (1)
  - Incorrect dose administered [Unknown]

NARRATIVE: CASE EVENT DATE: 20220223
